FAERS Safety Report 22313524 (Version 2)
Quarter: 2023Q2

REPORT INFORMATION
  Report Type: Spontaneous
  Country: US (occurrence: US)
  Receive Date: 20230512
  Receipt Date: 20230518
  Transmission Date: 20230722
  Serious: Yes (Hospitalization)
  Sender: FDA-Public Use
  Company Number: US-JNJFOC-20230518386

PATIENT
  Age: 77 Year
  Sex: Female
  Weight: 108.86 kg

DRUGS (3)
  1. TYLENOL [Suspect]
     Active Substance: ACETAMINOPHEN
     Indication: Product used for unknown indication
     Route: 065
  2. TYLENOL [Suspect]
     Active Substance: ACETAMINOPHEN
     Route: 065
  3. ZARONTIN [Suspect]
     Active Substance: ETHOSUXIMIDE
     Indication: Seizure
     Dosage: 100 CAPSULES. HAS BEEN TAKING BETWEEN 35 AND 40 YEARS
     Route: 065

REACTIONS (1)
  - Seizure [Recovered/Resolved]

NARRATIVE: CASE EVENT DATE: 20220801
